FAERS Safety Report 8507969-4 (Version None)
Quarter: 2012Q3

REPORT INFORMATION
  Report Type: 
  Country: None (occurrence: None)
  Receive Date: 20120713
  Receipt Date: 20120703
  Transmission Date: 20120928
  Serious: Yes (Hospitalization)
  Sender: FDA-Public Use
  Company Number: US-BAYER-2012-015881

PATIENT
  Age: 29 Year
  Sex: Female
  Weight: 108.84 kg

DRUGS (8)
  1. PERCOCET [Concomitant]
  2. IBUPROFEN (ADVIL) [Concomitant]
     Dosage: UNK UNK, PRN
  3. YAZ [Suspect]
     Dosage: UNK
     Dates: start: 20060601, end: 20090501
  4. LAMISIL [Concomitant]
     Dosage: 250 MG, UNK
     Route: 048
  5. YASMIN [Suspect]
     Dosage: UNK
     Dates: start: 20060601, end: 20090501
  6. PEPCID [Concomitant]
     Indication: GASTROOESOPHAGEAL REFLUX DISEASE
     Dosage: UNK UNK, PRN
  7. PERI-COLACE [Concomitant]
  8. DROSPIRENONE AND ETHINYL ESTRADIOL [Suspect]
     Dosage: UNK
     Dates: start: 20060601, end: 20090501

REACTIONS (4)
  - MENTAL DISORDER [None]
  - CHOLECYSTITIS [None]
  - PAIN [None]
  - GALLBLADDER DISORDER [None]
